FAERS Safety Report 16365124 (Version 3)
Quarter: 2022Q2

REPORT INFORMATION
  Report Type: Spontaneous
  Country: RO (occurrence: None)
  Receive Date: 20190529
  Receipt Date: 20220413
  Transmission Date: 20220721
  Serious: Yes (Other)
  Sender: FDA-Public Use
  Company Number: RO-ROCHE-2172691

PATIENT
  Age: 68 Year
  Sex: Female

DRUGS (7)
  1. OBINUTUZUMAB [Suspect]
     Active Substance: OBINUTUZUMAB
     Indication: Chronic lymphocytic leukaemia
     Route: 042
     Dates: start: 20180809
  2. OBINUTUZUMAB [Suspect]
     Active Substance: OBINUTUZUMAB
     Route: 042
     Dates: start: 20180810
  3. OBINUTUZUMAB [Suspect]
     Active Substance: OBINUTUZUMAB
     Route: 042
     Dates: start: 20180816
  4. OBINUTUZUMAB [Suspect]
     Active Substance: OBINUTUZUMAB
     Route: 042
     Dates: start: 20180822
  5. DEXAMETHASONE [Concomitant]
     Active Substance: DEXAMETHASONE
     Route: 042
  6. AERIUS [Concomitant]
  7. ACETAMINOPHEN [Concomitant]
     Active Substance: ACETAMINOPHEN

REACTIONS (14)
  - Syncope [Recovered/Resolved]
  - Hypertension [Recovered/Resolved]
  - Hyperhidrosis [Recovered/Resolved]
  - Palpitations [Recovered/Resolved]
  - Hypotension [Recovered/Resolved]
  - Malaise [Recovered/Resolved]
  - Blood pressure fluctuation [Recovered/Resolved]
  - Oxygen saturation decreased [Recovered/Resolved]
  - Dyspnoea [Recovered/Resolved]
  - Platelet count decreased [Recovered/Resolved]
  - Haemoglobin decreased [Recovered/Resolved]
  - Chills [Recovered/Resolved]
  - White blood cell count decreased [Recovered/Resolved]
  - Dizziness [Unknown]

NARRATIVE: CASE EVENT DATE: 20180809
